FAERS Safety Report 19288768 (Version 2)
Quarter: 2021Q3

REPORT INFORMATION
  Report Type: Spontaneous
  Country: US (occurrence: US)
  Receive Date: 20210522
  Receipt Date: 20210908
  Transmission Date: 20211014
  Serious: Yes (Hospitalization, Other)
  Sender: FDA-Public Use
  Company Number: US-ROCHE-2811451

PATIENT
  Sex: Female

DRUGS (6)
  1. AMLODIPINE [Concomitant]
     Active Substance: AMLODIPINE BESYLATE
     Indication: PRODUCT USED FOR UNKNOWN INDICATION
  2. ACTEMRA [Suspect]
     Active Substance: TOCILIZUMAB
     Indication: TAKAYASU^S ARTERITIS
     Dosage: 162MG SUBQ ONCE WEEKLY, ONGOING: YES
     Route: 058
     Dates: start: 201901
  3. LABETALOL [Concomitant]
     Active Substance: LABETALOL\LABETALOL HYDROCHLORIDE
     Indication: PRODUCT USED FOR UNKNOWN INDICATION
  4. PREDNISONE. [Concomitant]
     Active Substance: PREDNISONE
     Dosage: ONGOING: UNKNOWN
     Route: 042
     Dates: start: 202012
  5. IMURAN [Concomitant]
     Active Substance: AZATHIOPRINE
     Indication: PRODUCT USED FOR UNKNOWN INDICATION
     Dosage: 150MG, ONGOING : YES
  6. LISINOPRIL. [Concomitant]
     Active Substance: LISINOPRIL
     Indication: PRODUCT USED FOR UNKNOWN INDICATION

REACTIONS (13)
  - Fatigue [Not Recovered/Not Resolved]
  - Acne [Unknown]
  - COVID-19 [Unknown]
  - Off label use [Unknown]
  - Glaucoma [Unknown]
  - Fluid retention [Unknown]
  - Hyperhidrosis [Unknown]
  - Fibromyalgia [Unknown]
  - Injection site pain [Not Recovered/Not Resolved]
  - Pulmonary embolism [Unknown]
  - Osteoporosis [Unknown]
  - Rheumatoid arthritis [Unknown]
  - Takayasu^s arteritis [Unknown]
